FAERS Safety Report 4714480-5 (Version None)
Quarter: 2005Q3

REPORT INFORMATION
  Report Type: 
  Country: None (occurrence: None)
  Receive Date: 20050712
  Receipt Date: 20050629
  Transmission Date: 20060218
  Serious: No
  Sender: FDA-Public Use
  Company Number: 11746

PATIENT
  Age: 11 Year
  Sex: Male

DRUGS (2)
  1. METHOTREXATE [Suspect]
     Indication: JUVENILE ARTHRITIS
     Dosage: IV
     Route: 042
     Dates: start: 20011101
  2. CORTICOSTEROID [Suspect]
     Dates: start: 20011101, end: 20050101

REACTIONS (7)
  - ASTHENIA [None]
  - DRUG INEFFECTIVE [None]
  - MALAISE [None]
  - RHEUMATOID ARTHRITIS [None]
  - SWELLING [None]
  - VOMITING [None]
  - WEIGHT INCREASED [None]
